FAERS Safety Report 19043580 (Version 1)
Quarter: 2021Q1

REPORT INFORMATION
  Report Type: Spontaneous
  Country: US (occurrence: US)
  Receive Date: 20210323
  Receipt Date: 20210323
  Transmission Date: 20210420
  Serious: Yes (Other)
  Sender: FDA-Public Use
  Company Number: None

PATIENT
  Age: 40 Year
  Sex: Female
  Weight: 89.55 kg

DRUGS (3)
  1. NETTLE TEA [Concomitant]
  2. ALLERGY RELIEF, CETIRIZINE, COMPARED TO ZYRTEC [Suspect]
     Active Substance: CETIRIZINE HYDROCHLORIDE
     Indication: HYPERSENSITIVITY
     Dosage: ?          QUANTITY:300 TABLET(S);?
     Route: 048
     Dates: start: 20210301, end: 20210322
  3. NASACORT [Concomitant]
     Active Substance: TRIAMCINOLONE ACETONIDE

REACTIONS (2)
  - Hypersensitivity [None]
  - Product expiration date issue [None]

NARRATIVE: CASE EVENT DATE: 20210322
